FAERS Safety Report 5823876-X (Version None)
Quarter: 2008Q3

REPORT INFORMATION
  Report Type: 
  Country: None (occurrence: None)
  Receive Date: 20080725
  Receipt Date: 20080717
  Transmission Date: 20090109
  Serious: Yes (Hospitalization, Other)
  Sender: FDA-Public Use
  Company Number: US-GENENTECH-263717

PATIENT
  Sex: Female
  Weight: 21.315 kg

DRUGS (3)
  1. NUTROPIN AQ [Suspect]
     Indication: GROWTH RETARDATION
     Dosage: 0.9 MG, QD
     Route: 058
     Dates: start: 20080420
  2. NUTROPIN AQ [Suspect]
  3. FLOVENT [Concomitant]
     Indication: DRUG USE FOR UNKNOWN INDICATION

REACTIONS (1)
  - DEVICE FAILURE [None]
